FAERS Safety Report 23672546 (Version 6)
Quarter: 2024Q2

REPORT INFORMATION
  Report Type: Spontaneous
  Country: US (occurrence: US)
  Receive Date: 20240326
  Receipt Date: 20240506
  Transmission Date: 20240716
  Serious: No
  Sender: FDA-Public Use
  Company Number: US-PFIZER INC-PV202400033772

PATIENT
  Age: 12 Year
  Sex: Male
  Weight: 40.82 kg

DRUGS (4)
  1. GENOTROPIN [Suspect]
     Active Substance: SOMATROPIN
     Indication: Hypopituitarism
     Dosage: 1.2 MG, ALTERNATE DAY
     Dates: start: 202303
  2. GENOTROPIN [Suspect]
     Active Substance: SOMATROPIN
     Dosage: 1.4 MG, ALTERNATE DAY
  3. GENOTROPIN [Suspect]
     Active Substance: SOMATROPIN
     Dosage: ONCE AT NIGHT BEFORE BED BY INJECTION
     Dates: start: 2023, end: 20240228
  4. DEXAMETHASONE\OFLOXACIN [Concomitant]
     Active Substance: DEXAMETHASONE\OFLOXACIN
     Indication: Obsessive-compulsive disorder
     Dosage: 5MG ONCE A DAY IN THE MORNING

REACTIONS (6)
  - Device breakage [Unknown]
  - Device leakage [Unknown]
  - Device malfunction [Unknown]
  - Product odour abnormal [Unknown]
  - Drug dose omission by device [Unknown]
  - Drug ineffective [Unknown]
